FAERS Safety Report 6983244-4 (Version None)
Quarter: 2010Q3

REPORT INFORMATION
  Report Type: 
  Country: None (occurrence: None)
  Receive Date: 20100914
  Receipt Date: 20100719
  Transmission Date: 20110219
  Serious: Yes (Other)
  Sender: FDA-Public Use
  Company Number: US-PFIZER INC-2010090534

PATIENT
  Sex: Female
  Weight: 87.07 kg

DRUGS (12)
  1. LYRICA [Suspect]
     Indication: FIBROMYALGIA
     Dosage: 50 MG, 3X/DAY
     Route: 048
     Dates: start: 20090101
  2. NORVASC [Concomitant]
     Indication: HYPERTENSION
     Dosage: UNK
  3. METOPROLOL [Concomitant]
     Dosage: 12.5 MG
  4. HYDROCODONE [Concomitant]
     Indication: PAIN
     Dosage: UNK, AS NEEDED
  5. FLEXERIL [Concomitant]
     Indication: PAIN
     Dosage: UNK, AS NEEDED
  6. TRAMADOL [Concomitant]
     Indication: PAIN
     Dosage: UNK
  7. SENOKOT [Concomitant]
     Indication: CONSTIPATION
     Dosage: UNK
  8. VITAMIN D [Concomitant]
     Dosage: UNK
  9. VITAMIN B-12 [Concomitant]
     Dosage: UNK, THREE TIMES A WEEK
     Route: 060
  10. TYLENOL [Concomitant]
     Indication: PAIN
     Dosage: UNK
  11. CAFFEINE [Concomitant]
     Dosage: 6 TABLETS A DAY
  12. OMEGA-3 TRIGLYCERIDES [Concomitant]
     Dosage: UNK

REACTIONS (2)
  - DRY EYE [None]
  - VISION BLURRED [None]
